FAERS Safety Report 9252253 (Version 1)
Quarter: 2013Q2

REPORT INFORMATION
  Report Type: Spontaneous
  Country: US (occurrence: US)
  Receive Date: 20130424
  Receipt Date: 20130424
  Transmission Date: 20140414
  Serious: Yes (Hospitalization)
  Sender: FDA-Public Use
  Company Number: US-COVIDIEN/TYCO HEALTHCARE/MALLINCKRODT-T201301687

PATIENT
  Sex: Female

DRUGS (3)
  1. ROXICODONE [Suspect]
     Indication: BREAKTHROUGH PAIN
     Dosage: 15 MG, UNK
  2. GABAPENTIN [Suspect]
     Indication: NEURALGIA
     Dosage: 600 MG, UNK
  3. OXYCONTIN [Suspect]
     Indication: PRODUCT USED FOR UNKNOWN INDICATION
     Dosage: UNK

REACTIONS (2)
  - Complex regional pain syndrome [Unknown]
  - Infection [Unknown]
